FAERS Safety Report 13590218 (Version 2)
Quarter: 2017Q2

REPORT INFORMATION
  Report Type: Report from Study
  Country: FR (occurrence: FR)
  Receive Date: 20170529
  Receipt Date: 20170615
  Transmission Date: 20170830
  Serious: Yes (Hospitalization)
  Sender: FDA-Public Use
  Company Number: FR-PFIZER INC-2017233884

PATIENT
  Age: 69 Year
  Sex: Female

DRUGS (1)
  1. ESTRACYT [Suspect]
     Active Substance: ESTRAMUSTINE PHOSPHATE SODIUM
     Indication: BREAST CANCER METASTATIC
     Dosage: 280 MG, 2X/DAY
     Route: 048
     Dates: start: 20100909, end: 20110301

REACTIONS (2)
  - Metrorrhagia [Recovered/Resolved]
  - Nausea [Unknown]

NARRATIVE: CASE EVENT DATE: 20101007
